FAERS Safety Report 5362645-4 (Version None)
Quarter: 2007Q2

REPORT INFORMATION
  Report Type: 
  Country: None (occurrence: None)
  Receive Date: 20070530
  Receipt Date: 20070212
  Transmission Date: 20071010
  Serious: No
  Sender: FDA-Public Use
  Company Number: 2007PV029962

PATIENT
  Age: 62 Year
  Sex: Female
  Weight: 97.977 kg

DRUGS (7)
  1. BYETTA [Suspect]
     Indication: DIABETES MELLITUS NON-INSULIN-DEPENDENT
     Dosage: 5 MCG;BID;SC ; 5 MCG;BID;SC ; 10 MCG;BID;SC ; 5 MCG;BID;SC
     Route: 058
     Dates: start: 20070210, end: 20070210
  2. BYETTA [Suspect]
     Indication: DIABETES MELLITUS NON-INSULIN-DEPENDENT
     Dosage: 5 MCG;BID;SC ; 5 MCG;BID;SC ; 10 MCG;BID;SC ; 5 MCG;BID;SC
     Route: 058
     Dates: start: 20070213, end: 20070313
  3. BYETTA [Suspect]
     Indication: DIABETES MELLITUS NON-INSULIN-DEPENDENT
     Dosage: 5 MCG;BID;SC ; 5 MCG;BID;SC ; 10 MCG;BID;SC ; 5 MCG;BID;SC
     Route: 058
     Dates: start: 20070225
  4. BYETTA [Suspect]
     Indication: DIABETES MELLITUS NON-INSULIN-DEPENDENT
     Dosage: 5 MCG;BID;SC ; 5 MCG;BID;SC ; 10 MCG;BID;SC ; 5 MCG;BID;SC
     Route: 058
     Dates: start: 20070313
  5. AVANDAMET [Concomitant]
  6. EFFEXOR [Concomitant]
  7. TRAZODONE HCL [Concomitant]

REACTIONS (5)
  - BLOOD GLUCOSE INCREASED [None]
  - CHEST PAIN [None]
  - DRUG EFFECT DECREASED [None]
  - NAUSEA [None]
  - PAIN IN EXTREMITY [None]
